FAERS Safety Report 18131600 (Version 4)
Quarter: 2020Q3

REPORT INFORMATION
  Report Type: Report from Study
  Country: AU (occurrence: AU)
  Receive Date: 20200810
  Receipt Date: 20200923
  Transmission Date: 20201103
  Serious: Yes (Hospitalization)
  Sender: FDA-Public Use
  Company Number: AU-ROCHE-2603019

PATIENT
  Age: 71 Year
  Sex: Male
  Weight: 75 kg

DRUGS (17)
  1. TOCILIZUMAB. [Suspect]
     Active Substance: TOCILIZUMAB
     Indication: NON-HODGKIN^S LYMPHOMA
     Route: 042
     Dates: start: 20200514
  2. PANADOL [Concomitant]
     Active Substance: ACETAMINOPHEN
     Route: 048
     Dates: start: 20200505
  3. LORATADINE. [Concomitant]
     Active Substance: LORATADINE
     Dosage: SAME DOSE ON 12/MAY/20
     Dates: start: 20200505
  4. LORATADINE. [Concomitant]
     Active Substance: LORATADINE
     Dates: start: 20200519
  5. LORATADINE. [Concomitant]
     Active Substance: LORATADINE
     Dates: start: 20200526
  6. LORATADINE. [Concomitant]
     Active Substance: LORATADINE
     Dosage: SAME DOSE ON 12/MAY/2020, 19/MAY/2020,
     Dates: start: 20200505
  7. LORATADINE. [Concomitant]
     Active Substance: LORATADINE
     Dates: start: 20200618
  8. RO7082859 (CD20/C3 T?CELL BISPECIFIC MAB) [Suspect]
     Active Substance: GLOFITAMAB
     Indication: NON-HODGKIN^S LYMPHOMA
     Dosage: 12/MAY/2020 AT 07:21 AM, DOSE LAST STUDY DRUG ADMIN PRIOR SAE IS 2.5 MG.
     Route: 042
     Dates: start: 20200512
  9. PANADOL [Concomitant]
     Active Substance: ACETAMINOPHEN
     Dates: start: 20200526
  10. METHYLPRED [Concomitant]
     Active Substance: METHYLPREDNISOLONE
     Dosage: SAME DOSE ON 12/MAY/20
     Dates: start: 20200505
  11. METHYLPRED [Concomitant]
     Active Substance: METHYLPREDNISOLONE
     Dates: start: 20200526
  12. METHYLPRED [Concomitant]
     Active Substance: METHYLPREDNISOLONE
     Dates: start: 20200512
  13. OBINUTUZUMAB. [Suspect]
     Active Substance: OBINUTUZUMAB
     Indication: NON-HODGKIN^S LYMPHOMA
     Dosage: YES. MOST RECENT DOSE OF STUDY DRUG PRIOR TO SAE  ON 05/MAY/2020 AT 10:00 AM?END TIME AT 02:39 PM
     Route: 042
     Dates: start: 20200505
  14. PANADOL [Concomitant]
     Active Substance: ACETAMINOPHEN
     Indication: INFUSION RELATED REACTION
     Dosage: SAME DOSE ON 12/MAY/2020, 19/MAY/2020
     Route: 048
     Dates: start: 20200506
  15. METHYLPRED [Concomitant]
     Active Substance: METHYLPREDNISOLONE
     Dates: start: 20200618
  16. LORATADINE. [Concomitant]
     Active Substance: LORATADINE
     Dates: start: 20200505
  17. METHYLPRED [Concomitant]
     Active Substance: METHYLPREDNISOLONE
     Dates: start: 20200519

REACTIONS (1)
  - Cytokine release syndrome [Recovered/Resolved]

NARRATIVE: CASE EVENT DATE: 20200512
